FAERS Safety Report 6223749-7 (Version None)
Quarter: 2009Q2

REPORT INFORMATION
  Report Type: 
  Country: None (occurrence: None)
  Receive Date: 20090611
  Receipt Date: 20090414
  Transmission Date: 20091009
  Serious: No
  Sender: FDA-Public Use
  Company Number: US-ABBOTT-09P-163-0498778-00

PATIENT
  Sex: Female
  Weight: 54.48 kg

DRUGS (11)
  1. HUMIRA [Suspect]
     Indication: ANKYLOSING SPONDYLITIS
     Route: 058
     Dates: start: 20050101, end: 20081001
  2. HUMIRA [Suspect]
     Indication: ANKYLOSING SPONDYLITIS
     Route: 058
     Dates: start: 20081001, end: 20090101
  3. HUMIRA [Suspect]
     Route: 058
     Dates: start: 20090201, end: 20090201
  4. HUMIRA [Suspect]
     Route: 058
     Dates: start: 20090201
  5. HYDROXYUREA [Concomitant]
     Indication: RED BLOOD CELL COUNT DECREASED
     Route: 048
  6. MIRAPEX [Concomitant]
     Indication: RESTLESS LEGS SYNDROME
     Route: 048
  7. CYMBALTA [Concomitant]
     Indication: DEPRESSION
     Route: 048
  8. CYMBALTA [Concomitant]
     Indication: PAIN
  9. CYMBALTA [Concomitant]
     Indication: SLEEP DISORDER
  10. LEVOTHYROXINE [Concomitant]
     Indication: THYROIDECTOMY
     Route: 048
  11. ATENOLOL [Concomitant]
     Indication: HYPERTENSION
     Route: 048

REACTIONS (6)
  - ANKYLOSING SPONDYLITIS [None]
  - BREAKTHROUGH PAIN [None]
  - DRUG INEFFECTIVE [None]
  - INJECTION SITE PAIN [None]
  - JOINT SWELLING [None]
  - RHEUMATOID ARTHRITIS [None]
